FAERS Safety Report 9905620 (Version 1)
Quarter: 2013Q2

REPORT INFORMATION
  Report Type: Spontaneous
  Country: US (occurrence: None)
  Receive Date: 20130305
  Receipt Date: 20130305
  Transmission Date: 20140414
  Serious: Yes (Other)
  Sender: FDA-Public Use
  Company Number: 1000040499

PATIENT
  Age: 65 Year
  Sex: Female

DRUGS (10)
  1. DALIRESP (ROFLUMILAST) (500 MICROGRAM, TABLETS) [Suspect]
     Indication: CHRONIC OBSTRUCTIVE PULMONARY DISEASE
     Route: 048
     Dates: start: 20121109
  2. XOPENEX (LEVOSALBUTAMOL HYDROCHLORIDE) (LEVOSALBUTAMOL HYDROCHLORIDE) [Concomitant]
  3. QVAR (BECLOMETASONE DIPROPIONATE) (BECLOMETASONE DIPROPIONATE) [Concomitant]
  4. NEURONTIN (GABAPENTIN) (GABAPENTIN) [Concomitant]
  5. SINGULAIR (MONTELUKAST SODIUM (MONTELUKAST SODIUM) [Concomitant]
  6. SPIRIVA (TIOTROPIUM BROMIDE) (TIOTROPIUM BROMIDE) [Concomitant]
  7. GUAIFENESIN (GUAIFENESIN) (GUAIFENESIN) [Concomitant]
  8. PREVACID (LANSOPRAZOLE) (LANDSOPRAZOLE) [Concomitant]
  9. FLONASE (FLUTICASONE PROPIONATE) (FLUTICASONE PROPIONATE) [Concomitant]
  10. ZYRTEC (CETIRIZINE HYDROCHLORIDE) (CETIRIZINE HYDROCHLORIDE) [Concomitant]

REACTIONS (4)
  - Abdominal discomfort [None]
  - Headache [None]
  - Diarrhoea [None]
  - Insomnia [None]
